FAERS Safety Report 20695994 (Version 12)
Quarter: 2024Q1

REPORT INFORMATION
  Report Type: Report from Study
  Country: JP (occurrence: JP)
  Receive Date: 20220411
  Receipt Date: 20240315
  Transmission Date: 20240409
  Serious: Yes (Hospitalization, Other)
  Sender: FDA-Public Use
  Company Number: JP-ASTELLAS-2022JP004064

PATIENT
  Age: 71 Year
  Sex: Male
  Weight: 60 kg

DRUGS (44)
  1. ENFORTUMAB VEDOTIN [Suspect]
     Active Substance: ENFORTUMAB VEDOTIN
     Indication: Transitional cell carcinoma
     Dosage: 1.25 MG/KG (80 MG), UNKNOWN FREQ.
     Route: 041
     Dates: start: 20220301, end: 20220308
  2. ENFORTUMAB VEDOTIN [Suspect]
     Active Substance: ENFORTUMAB VEDOTIN
     Dosage: 1.0 MG/KG (64 MG (80%)), UNKNOWN FREQ.
     Route: 041
     Dates: start: 20220315, end: 20220315
  3. ENFORTUMAB VEDOTIN [Suspect]
     Active Substance: ENFORTUMAB VEDOTIN
     Dosage: 1.0 MG/KG (60 MG (81%)), UNKNOWN FREQ.
     Route: 041
     Dates: start: 20220412, end: 20220426
  4. ENFORTUMAB VEDOTIN [Suspect]
     Active Substance: ENFORTUMAB VEDOTIN
     Dosage: 1.0 MG/KG (60 MG (81%)), UNKNOWN FREQ.
     Route: 041
     Dates: start: 20220517, end: 20220726
  5. ENFORTUMAB VEDOTIN [Suspect]
     Active Substance: ENFORTUMAB VEDOTIN
     Dosage: 1.0 MG/KG (67 MG (90%)), UNKNOWN FREQ.
     Route: 041
     Dates: start: 20220809, end: 20220823
  6. ENFORTUMAB VEDOTIN [Suspect]
     Active Substance: ENFORTUMAB VEDOTIN
     Dosage: 1.125 MG/KG (67 MG (90%), UNKNOWN FREQ.
     Route: 041
     Dates: start: 20220906, end: 20220906
  7. ENFORTUMAB VEDOTIN [Suspect]
     Active Substance: ENFORTUMAB VEDOTIN
     Dosage: 1.125 MG/KG (60 MG), UNKNOWN FREQ.
     Route: 041
     Dates: start: 20220913, end: 20220920
  8. CARBOPLATIN [Suspect]
     Active Substance: CARBOPLATIN
     Indication: Transitional cell carcinoma
     Dosage: UNK UNK, UNKNOWN FREQ.
     Route: 065
     Dates: start: 20190514, end: 20210803
  9. KEYTRUDA [Suspect]
     Active Substance: PEMBROLIZUMAB
     Indication: Transitional cell carcinoma
     Dosage: UNK UNK, UNKNOWN FREQ.
     Route: 065
     Dates: start: 20211214, end: 20220125
  10. AVELUMAB [Suspect]
     Active Substance: AVELUMAB
     Indication: Product used for unknown indication
     Dosage: UNK UNK, UNKNOWN FREQ.
     Route: 065
  11. ENTECAVIR [Concomitant]
     Active Substance: ENTECAVIR
     Indication: Hepatitis B
     Dosage: 0.5 MG, ONCE DAILY
     Route: 048
     Dates: start: 20201121
  12. SENNOSIDES [Concomitant]
     Active Substance: SENNOSIDES
     Indication: Constipation
     Route: 048
     Dates: start: 20210119
  13. DOMPERIDONE [Concomitant]
     Active Substance: DOMPERIDONE
     Indication: Nausea
     Route: 048
     Dates: start: 20210831, end: 20220412
  14. DOMPERIDONE [Concomitant]
     Active Substance: DOMPERIDONE
     Indication: Decreased appetite
  15. GASTER [Concomitant]
     Active Substance: FAMOTIDINE
     Indication: Gastroenteritis
     Route: 048
     Dates: start: 20220301, end: 20220328
  16. CALONAL [Concomitant]
     Active Substance: ACETAMINOPHEN
     Indication: Pyrexia
     Route: 048
     Dates: start: 20220301, end: 20220412
  17. CALONAL [Concomitant]
     Active Substance: ACETAMINOPHEN
     Indication: Headache
  18. GLYCOSAMINOGLYCANS [Concomitant]
     Active Substance: GLYCOSAMINOGLYCANS
     Indication: Prophylaxis
     Dosage: UNK UNK, UNKNOWN FREQ.
     Route: 065
     Dates: start: 20220308
  19. GLYCOSAMINOGLYCANS [Concomitant]
     Active Substance: GLYCOSAMINOGLYCANS
     Indication: Rash
     Dosage: APPROPRIATE AMOUNT, TWICE DAILY
     Route: 050
     Dates: start: 20220316
  20. TEPRENONE [Concomitant]
     Active Substance: TEPRENONE
     Indication: Rash
     Dosage: UNK UNK, UNKNOWN FREQ.
     Route: 065
  21. PANCRELIPASE [Concomitant]
     Active Substance: PANCRELIPASE
     Indication: Rash
     Dosage: UNK UNK, UNKNOWN FREQ.
     Route: 065
  22. SOLU-MEDROL [Concomitant]
     Active Substance: METHYLPREDNISOLONE SODIUM SUCCINATE
     Indication: Rash
     Route: 065
     Dates: start: 20220315
  23. SOLU-MEDROL [Concomitant]
     Active Substance: METHYLPREDNISOLONE SODIUM SUCCINATE
     Route: 065
     Dates: start: 20220323, end: 20220325
  24. HEPARIN [Concomitant]
     Active Substance: HEPARIN SODIUM
     Indication: Product used for unknown indication
     Dosage: UNK UNK, UNKNOWN FREQ.
     Route: 065
     Dates: start: 20220315
  25. AMINO ACIDS\DEXTROSE\ELECTROLYTES NOS\VITAMINS [Concomitant]
     Active Substance: AMINO ACIDS\DEXTROSE\ELECTROLYTES NOS\VITAMINS
     Indication: Decreased appetite
     Route: 050
     Dates: start: 20220315, end: 20220404
  26. AMINO ACIDS\DEXTROSE\ELECTROLYTES NOS\VITAMINS [Concomitant]
     Active Substance: AMINO ACIDS\DEXTROSE\ELECTROLYTES NOS\VITAMINS
     Indication: Diarrhoea
  27. CALCIUM CHLORIDE\POTASSIUM CHLORIDE\SODIUM CHLORIDE\SODIUM LACTATE [Concomitant]
     Active Substance: CALCIUM CHLORIDE\POTASSIUM CHLORIDE\SODIUM CHLORIDE\SODIUM LACTATE
     Indication: Decreased appetite
     Route: 050
     Dates: start: 20220315, end: 20220404
  28. CALCIUM CHLORIDE\POTASSIUM CHLORIDE\SODIUM CHLORIDE\SODIUM LACTATE [Concomitant]
     Active Substance: CALCIUM CHLORIDE\POTASSIUM CHLORIDE\SODIUM CHLORIDE\SODIUM LACTATE
     Indication: Diarrhoea
  29. BETAMETHASONE [Concomitant]
     Active Substance: BETAMETHASONE\BETAMETHASONE DIPROPIONATE
     Indication: Rash
     Route: 050
     Dates: start: 20220316
  30. BELSOMRA [Concomitant]
     Active Substance: SUVOREXANT
     Indication: Insomnia
     Route: 048
     Dates: start: 20220316, end: 20220405
  31. INSULIN GLARGINE [Concomitant]
     Active Substance: INSULIN GLARGINE
     Indication: Hyperglycaemia
     Route: 058
     Dates: start: 20220324
  32. INSULIN GLARGINE [Concomitant]
     Active Substance: INSULIN GLARGINE
     Route: 058
     Dates: start: 20220325
  33. INSULIN GLARGINE [Concomitant]
     Active Substance: INSULIN GLARGINE
     Route: 058
     Dates: start: 20220328
  34. INSULIN GLARGINE [Concomitant]
     Active Substance: INSULIN GLARGINE
     Route: 058
     Dates: start: 20220401
  35. INSULIN GLARGINE [Concomitant]
     Active Substance: INSULIN GLARGINE
     Route: 058
     Dates: start: 20220404, end: 20220405
  36. PREDONINE [Concomitant]
     Active Substance: PREDNISOLONE
     Indication: Skin disorder
     Dosage: 5 MG, MORNING 3, DAYTIME 2, EVENING 1
     Route: 048
     Dates: start: 20220326
  37. PREDONINE [Concomitant]
     Active Substance: PREDNISOLONE
     Dosage: 5 MG, MORNING 3, DAYTIME 2
     Route: 048
     Dates: start: 20220330
  38. PREDONINE [Concomitant]
     Active Substance: PREDNISOLONE
     Route: 048
     Dates: start: 20220403
  39. PREDONINE [Concomitant]
     Active Substance: PREDNISOLONE
     Route: 048
     Dates: start: 20220407
  40. PREDONINE [Concomitant]
     Active Substance: PREDNISOLONE
     Route: 048
     Dates: start: 20220411
  41. PREDONINE [Concomitant]
     Active Substance: PREDNISOLONE
     Route: 065
     Dates: start: 20220415, end: 20220419
  42. LYRICA [Concomitant]
     Active Substance: PREGABALIN
     Indication: Pain
     Route: 048
     Dates: start: 20220327, end: 20220412
  43. LYRICA [Concomitant]
     Active Substance: PREGABALIN
     Indication: Neuralgia
  44. JANUVIA [Concomitant]
     Active Substance: SITAGLIPTIN PHOSPHATE
     Indication: Hyperglycaemia
     Dosage: 50 MG, ONCE DAILY, MORNING
     Route: 048
     Dates: start: 20220405

REACTIONS (13)
  - Rash [Recovering/Resolving]
  - Malaise [Recovered/Resolved]
  - Dehydration [Recovered/Resolved]
  - Constipation [Recovered/Resolved]
  - Pyrexia [Recovered/Resolved]
  - Decreased appetite [Recovering/Resolving]
  - Mucosal inflammation [Recovered/Resolved]
  - Hyperglycaemia [Recovered/Resolved]
  - Alopecia [Recovered/Resolved]
  - Neuralgia [Not Recovered/Not Resolved]
  - Diarrhoea [Recovering/Resolving]
  - Pain of skin [Recovering/Resolving]
  - Skin exfoliation [Recovering/Resolving]

NARRATIVE: CASE EVENT DATE: 20220308
